FAERS Safety Report 18438447 (Version 2)
Quarter: 2020Q4

REPORT INFORMATION
  Report Type: Spontaneous
  Country: BE (occurrence: BE)
  Receive Date: 20201028
  Receipt Date: 20201130
  Transmission Date: 20210114
  Serious: Yes (Other)
  Sender: FDA-Public Use
  Company Number: BE-ELI_LILLY_AND_COMPANY-BE202010010738

PATIENT
  Age: 42 Year
  Sex: Male

DRUGS (5)
  1. ZYPADHERA [Suspect]
     Active Substance: OLANZAPINE PAMOATE
     Indication: SCHIZOPHRENIA
     Dosage: 1 DOSAGE FORM, 2/M
     Route: 030
  2. BIOSIL [Concomitant]
     Indication: PRODUCT USED FOR UNKNOWN INDICATION
     Dosage: 2 DOSAGE FORM, DAILY
     Route: 048
  3. OMNIBIONTA INTEGRAL [Concomitant]
     Indication: PRODUCT USED FOR UNKNOWN INDICATION
     Dosage: 1 DOSAGE FORM, DAILY
     Route: 048
  4. ZYPADHERA [Suspect]
     Active Substance: OLANZAPINE PAMOATE
     Indication: SCHIZOPHRENIA
     Dosage: 1 DOSAGE FORM, 2/M
     Route: 030
  5. ZYPADHERA [Suspect]
     Active Substance: OLANZAPINE PAMOATE
     Indication: SCHIZOPHRENIA
     Dosage: 1 DOSAGE FORM, 2/M
     Route: 030

REACTIONS (14)
  - Hyperhidrosis [Recovering/Resolving]
  - Tremor [Recovering/Resolving]
  - Sedation [Recovering/Resolving]
  - Pallor [Recovering/Resolving]
  - Inappropriate schedule of product administration [Recovering/Resolving]
  - Muscular weakness [Recovering/Resolving]
  - Hypothermia [Recovering/Resolving]
  - Dizziness [Recovering/Resolving]
  - Snoring [Recovering/Resolving]
  - Confusional state [Recovering/Resolving]
  - Dysarthria [Recovering/Resolving]
  - Post-injection delirium sedation syndrome [Recovering/Resolving]
  - Fatigue [Recovering/Resolving]
  - Nausea [Recovering/Resolving]

NARRATIVE: CASE EVENT DATE: 20201015
